FAERS Safety Report 6413285-7 (Version None)
Quarter: 2009Q4

REPORT INFORMATION
  Report Type: 
  Country: None (occurrence: None)
  Receive Date: 20091026
  Receipt Date: 20091021
  Transmission Date: 20100525
  Serious: Yes (Hospitalization)
  Sender: FDA-Public Use
  Company Number: JP-BAYER-200913985BYL

PATIENT
  Age: 63 Year
  Sex: Female

DRUGS (6)
  1. FLUDARA [Suspect]
     Indication: LYMPHOPLASMACYTOID LYMPHOMA/IMMUNOCYTOMA STAGE IV
     Route: 048
     Dates: start: 20090120, end: 20090124
  2. PREDONINE [Concomitant]
     Indication: LYMPHOPLASMACYTOID LYMPHOMA/IMMUNOCYTOMA STAGE IV
     Route: 048
     Dates: start: 20090118, end: 20090123
  3. LASIX [Concomitant]
     Indication: OEDEMA
     Route: 048
     Dates: start: 20090115, end: 20090730
  4. OMEPRAL [Concomitant]
     Indication: PROPHYLAXIS AGAINST GASTROINTESTINAL ULCER
     Route: 048
     Dates: start: 20090122
  5. ALOSITOL [Concomitant]
     Indication: HYPERURICAEMIA
     Route: 048
     Dates: start: 20090122
  6. URSO 250 [Concomitant]
     Indication: HEPATITIS C
     Route: 048
     Dates: start: 20090122

REACTIONS (1)
  - HEPATIC FUNCTION ABNORMAL [None]
